FAERS Safety Report 17778001 (Version 3)
Quarter: 2021Q2

REPORT INFORMATION
  Report Type: Spontaneous
  Country: US (occurrence: US)
  Receive Date: 20200513
  Receipt Date: 20210624
  Transmission Date: 20210716
  Serious: Yes (Death, Other)
  Sender: FDA-Public Use
  Company Number: US-GILEAD-2020-0466770

PATIENT
  Age: 65 Year
  Sex: Male
  Weight: 113 kg

DRUGS (10)
  1. VIREAD [Suspect]
     Active Substance: TENOFOVIR DISOPROXIL FUMARATE
     Indication: HIV INFECTION
     Dosage: UNK
     Route: 048
     Dates: start: 2001, end: 201001
  2. AMOXICILLIN. [Concomitant]
     Active Substance: AMOXICILLIN
  3. LASIX [Concomitant]
     Active Substance: FUROSEMIDE
  4. PENICILLIN NOS [Concomitant]
     Active Substance: PENICILLIN
  5. RANITIDINE. [Concomitant]
     Active Substance: RANITIDINE
  6. FLOMAX [Concomitant]
     Active Substance: TAMSULOSIN HYDROCHLORIDE
  7. WARFARIN [Concomitant]
     Active Substance: WARFARIN
  8. ACETAMINOPHEN. [Concomitant]
     Active Substance: ACETAMINOPHEN
  9. PREDNISONE. [Concomitant]
     Active Substance: PREDNISONE
  10. ASPIRIN [ACETYLSALICYLIC ACID] [Concomitant]
     Active Substance: ASPIRIN

REACTIONS (7)
  - Death [Fatal]
  - Pain [Unknown]
  - Skeletal injury [Fatal]
  - Emotional distress [Unknown]
  - End stage renal disease [Not Recovered/Not Resolved]
  - Renal failure [Unknown]
  - Renal injury [Fatal]

NARRATIVE: CASE EVENT DATE: 2003
